FAERS Safety Report 12480290 (Version 1)
Quarter: 2016Q2

REPORT INFORMATION
  Report Type: Spontaneous
  Country: US (occurrence: None)
  Receive Date: 20160617
  Receipt Date: 20160617
  Transmission Date: 20160815
  Serious: No
  Sender: FDA-Public Use
  Company Number: None

PATIENT
  Age: 36 Year
  Sex: Female
  Weight: 122.47 kg

DRUGS (1)
  1. MIRENA [Suspect]
     Active Substance: LEVONORGESTREL
     Dates: start: 20140101, end: 20160611

REACTIONS (3)
  - Complication of device removal [None]
  - Complication of device insertion [None]
  - Medical device pain [None]

NARRATIVE: CASE EVENT DATE: 20160611
